FAERS Safety Report 8965306 (Version 2)
Quarter: 2015Q1

REPORT INFORMATION
  Report Type: Spontaneous
  Country: US (occurrence: US)
  Receive Date: 20121213
  Receipt Date: 20150205
  Transmission Date: 20150721
  Serious: Yes (Other)
  Sender: FDA-Public Use
  Company Number: US-ROCHE-1032796

PATIENT
  Sex: Female

DRUGS (1)
  1. AVASTIN [Suspect]
     Active Substance: BEVACIZUMAB
     Indication: MACULAR DEGENERATION
     Dosage: RECEIVED INTRAVITREAL INJECTION ON 9 JUL 2010, 3 SEP 2010, 5 NOV 2010, 11 FEB 2011, 22 FEB 2010, 24
     Route: 050
     Dates: start: 20100208

REACTIONS (6)
  - Blindness [Unknown]
  - Endophthalmitis [Recovering/Resolving]
  - Myopia [Unknown]
  - Suspected transmission of an infectious agent via product [Unknown]
  - Subretinal fluid [Unknown]
  - Detachment of retinal pigment epithelium [Unknown]
